FAERS Safety Report 6393439-9 (Version None)
Quarter: 2009Q4

REPORT INFORMATION
  Report Type: 
  Country: None (occurrence: None)
  Receive Date: 20091008
  Receipt Date: 20090929
  Transmission Date: 20100525
  Serious: Yes (Hospitalization, Other)
  Sender: FDA-Public Use
  Company Number: JP-ASTRAZENECA-2009SE12822

PATIENT
  Age: 83 Year
  Sex: Male

DRUGS (13)
  1. IRESSA [Suspect]
     Indication: LUNG NEOPLASM MALIGNANT
     Route: 048
     Dates: start: 20090722, end: 20090818
  2. IRESSA [Suspect]
     Route: 048
     Dates: start: 20090910
  3. CRAVIT [Suspect]
     Indication: URINARY TRACT INFECTION
     Route: 048
  4. EVAMYL [Suspect]
     Route: 048
     Dates: start: 20090622
  5. LOXONIN [Suspect]
     Indication: URINARY TRACT INFECTION
     Route: 048
     Dates: start: 20090814, end: 20090814
  6. FERRO-GRADUMET [Concomitant]
     Route: 048
     Dates: start: 20090622, end: 20090828
  7. MAGMITT [Concomitant]
     Route: 048
     Dates: start: 20090713, end: 20090828
  8. EXCELASE [Concomitant]
     Route: 048
     Dates: start: 20090713, end: 20090828
  9. BIOFERMIN [Concomitant]
     Route: 048
     Dates: start: 20090713, end: 20090828
  10. TRANSAMIN [Concomitant]
     Route: 048
     Dates: start: 20090718, end: 20090722
  11. ADONA [Concomitant]
     Route: 048
     Dates: start: 20090718, end: 20090730
  12. NIPOLAZIN [Concomitant]
     Route: 048
     Dates: start: 20090814, end: 20090816
  13. FLOMOX [Concomitant]
     Route: 048
     Dates: start: 20090818, end: 20090831

REACTIONS (3)
  - EOSINOPHILIA [None]
  - HEPATIC FUNCTION ABNORMAL [None]
  - RASH [None]
